FAERS Safety Report 6775513-8 (Version None)
Quarter: 2010Q2

REPORT INFORMATION
  Report Type: 
  Country: None (occurrence: None)
  Receive Date: 20100617
  Receipt Date: 20100607
  Transmission Date: 20101027
  Serious: Yes (Hospitalization)
  Sender: FDA-Public Use
  Company Number: US-CELGENEUS-163-20785-10051979

PATIENT
  Sex: Male

DRUGS (2)
  1. THALOMID [Suspect]
     Indication: NEOPLASM
     Route: 048
     Dates: start: 20100501
  2. THALOMID [Suspect]
     Dosage: 350-800 MG
     Route: 048
     Dates: start: 20100101

REACTIONS (2)
  - FULL BLOOD COUNT DECREASED [None]
  - HERPES ZOSTER [None]
